FAERS Safety Report 18089953 (Version 2)
Quarter: 2021Q2

REPORT INFORMATION
  Report Type: Spontaneous
  Country: US (occurrence: US)
  Receive Date: 20200730
  Receipt Date: 20210629
  Transmission Date: 20210717
  Serious: No
  Sender: FDA-Public Use
  Company Number: US-TEVA-2020-US-1808287

PATIENT
  Sex: Male

DRUGS (5)
  1. SENNA?S 8.6MG?50MG TABLET [Concomitant]
     Dosage: 8.6MG?50MG
  2. AUSTEDO [Suspect]
     Active Substance: DEUTETRABENAZINE
     Indication: HUNTINGTON^S DISEASE
     Dosage: 12 MILLIGRAM DAILY;
     Route: 048
     Dates: start: 202003
  3. B?12 1000 MCG TABLET [Concomitant]
  4. LISINOPRIL 100 % POWDER [Concomitant]
  5. LEXAPRO 10 MG TABLET [Concomitant]

REACTIONS (2)
  - Memory impairment [Unknown]
  - Confusional state [Unknown]

NARRATIVE: CASE EVENT DATE: 2020
